FAERS Safety Report 5167656-X (Version None)
Quarter: 2006Q4

REPORT INFORMATION
  Report Type: 
  Country: None (occurrence: None)
  Receive Date: 20061201
  Receipt Date: 20061201
  Transmission Date: 20070319
  Serious: Yes (Hospitalization)
  Sender: FDA-Public Use
  Company Number: None

PATIENT
  Age: 59 Year
  Sex: Male
  Weight: 91.173 kg

DRUGS (18)
  1. LISINOPRIL [Suspect]
     Indication: HYPERTENSION
     Dosage: 40 MG DAILY PO
     Route: 048
     Dates: start: 20040301, end: 20061124
  2. FUROSEMIDE [Suspect]
     Indication: PULMONARY OEDEMA
     Dosage: 40 MG BID PO
     Route: 048
     Dates: start: 20061027, end: 20061124
  3. ATENOLOL [Concomitant]
  4. CIPRO [Concomitant]
  5. CLINDAMYCIN [Concomitant]
  6. FERROUS SULFATE TAB [Concomitant]
  7. FLUNISOLIDE INHL [Concomitant]
  8. FOLIC ACID [Concomitant]
  9. GABAPENTIN [Concomitant]
  10. LEVOTHYROXINE SODIUM [Concomitant]
  11. LIDOCAINE [Concomitant]
  12. MICONAZOLE [Concomitant]
  13. MORPHINE [Concomitant]
  14. OMEPRAZOLE [Concomitant]
  15. SERTRALINE HYDROCHLORIDE [Concomitant]
  16. SIMVASTATIN [Concomitant]
  17. STANNOUS FLUORIDE [Concomitant]
  18. TERAZOSIN HCL [Concomitant]

REACTIONS (5)
  - LABORATORY TEST ABNORMAL [None]
  - RENAL FAILURE ACUTE [None]
  - SOMNOLENCE [None]
  - SYNCOPE [None]
  - URINARY TRACT INFECTION [None]
